FAERS Safety Report 9736999 (Version 1)
Quarter: 2013Q4

REPORT INFORMATION
  Report Type: Spontaneous
  Country: US (occurrence: US)
  Receive Date: 20131206
  Receipt Date: 20131206
  Transmission Date: 20140711
  Serious: No
  Sender: FDA-Public Use
  Company Number: US-GILEAD-2009-0023113

PATIENT
  Sex: Female
  Weight: 82.55 kg

DRUGS (7)
  1. LETAIRIS [Suspect]
     Indication: PULMONARY ARTERIAL HYPERTENSION
     Route: 048
     Dates: start: 20090629
  2. NIFEDIPINE [Concomitant]
  3. CLONIDINE [Concomitant]
  4. ASPIRIN [Concomitant]
  5. PREDNISONE [Concomitant]
  6. AZATHIOPRINE [Concomitant]
  7. VITAMIN E [Concomitant]

REACTIONS (1)
  - Abdominal discomfort [Unknown]
